FAERS Safety Report 7928734-2 (Version None)
Quarter: 2011Q4

REPORT INFORMATION
  Report Type: 
  Country: None (occurrence: None)
  Receive Date: 20111118
  Receipt Date: 20111104
  Transmission Date: 20120403
  Serious: Yes (Hospitalization, Other)
  Sender: FDA-Public Use
  Company Number: PHHY2011FR097646

PATIENT
  Sex: Male

DRUGS (19)
  1. NEORAL [Interacting]
     Dosage: 110 MG, BID
     Route: 048
     Dates: end: 20110805
  2. COLCHICINE [Suspect]
     Dosage: 1 DF
     Dates: start: 20110718, end: 20110727
  3. MYCOPHENOLATE MOFETIL (CELLCEPT) [Concomitant]
     Dosage: 500 MG, BID
  4. PHOSPHONEUROS [Concomitant]
     Dosage: 25 DROPS, QD
  5. ALFUZOSIN HCL [Concomitant]
     Dosage: 10 MG, QD
  6. TRAMADOL HCL [Concomitant]
     Dosage: 100 MG, BID
  7. FERROUS SULFATE TAB [Concomitant]
     Dosage: 80 MG, QD
  8. PRAVASTATIN SODIUM [Interacting]
     Dosage: 40 MG, QD
     Route: 048
     Dates: end: 20110728
  9. BACTRIM [Concomitant]
     Dosage: 1 DF, QD
  10. HUMALOG [Concomitant]
     Dosage: UNK UKN, TID
  11. INSULATARD NPH HUMAN [Concomitant]
     Dosage: UNK UKN, UNK
  12. KETOPROFEN [Concomitant]
     Dosage: 150 MG, BID
  13. ASPEGIC 325 [Concomitant]
     Dosage: 100 MG, QD
  14. BISOPROLOL FUMARATE [Concomitant]
     Dosage: 2.5 MG, DAILY
  15. LASIX [Concomitant]
     Dosage: 20 MG, TID
  16. PREDNISOLONE [Concomitant]
     Dosage: 5 MG, UNK
  17. ADENURIC [Concomitant]
     Dosage: 80 MG, QD
  18. ACETAMINOPHEN [Concomitant]
     Dosage: 1000 MG, QD
  19. MIANSERIN [Concomitant]
     Dosage: 30 MG, QD

REACTIONS (21)
  - HEPATITIS [None]
  - ALOPECIA [None]
  - ANAEMIA [None]
  - NEUROMYOPATHY [None]
  - VOMITING [None]
  - RENAL FAILURE [None]
  - RHABDOMYOLYSIS [None]
  - LEUKOPENIA [None]
  - MYALGIA [None]
  - MYOSITIS [None]
  - DIARRHOEA [None]
  - MUSCULAR WEAKNESS [None]
  - THROMBOCYTOPENIA [None]
  - DIABETIC NEUROPATHY [None]
  - NERVOUS SYSTEM DISORDER [None]
  - EATING DISORDER [None]
  - BLOOD BILIRUBIN INCREASED [None]
  - TOXICITY TO VARIOUS AGENTS [None]
  - DRUG INTERACTION [None]
  - CYSTIC LYMPHANGIOMA [None]
  - OEDEMA PERIPHERAL [None]
